FAERS Safety Report 9146537 (Version 1)
Quarter: 2013Q1

REPORT INFORMATION
  Report Type: Spontaneous
  Country: US (occurrence: US)
  Receive Date: 20130307
  Receipt Date: 20130307
  Transmission Date: 20140127
  Serious: Yes (Hospitalization)
  Sender: FDA-Public Use
  Company Number: US-GLAXOSMITHKLINE-A1000902A

PATIENT
  Age: 69 Year
  Sex: Male

DRUGS (11)
  1. REQUIP [Suspect]
     Indication: RESTLESS LEGS SYNDROME
     Dosage: 4MG FIVE TIMES PER DAY
     Route: 048
     Dates: start: 2008
  2. ASPIRIN [Concomitant]
  3. EPO [Concomitant]
  4. FUROSEMIDE [Concomitant]
  5. OMEPRAZOLE [Concomitant]
  6. SIMVASTATIN [Concomitant]
  7. METOPROLOL [Concomitant]
  8. NITROSTAT [Concomitant]
  9. LISINOPRIL [Concomitant]
  10. CALCITRIOL [Concomitant]
  11. MAGNESIUM OXIDE [Concomitant]

REACTIONS (2)
  - Chest pain [Unknown]
  - Overdose [Unknown]
